FAERS Safety Report 9944393 (Version 1)
Quarter: 2014Q1

REPORT INFORMATION
  Report Type: Report from Study
  Country: US (occurrence: US)
  Receive Date: 20140303
  Receipt Date: 20140303
  Transmission Date: 20141002
  Serious: No
  Sender: FDA-Public Use
  Company Number: US-ABBVIE-13P-163-1052811-00

PATIENT
  Age: 47 Year
  Sex: Female
  Weight: 65.83 kg

DRUGS (4)
  1. HUMIRA [Suspect]
     Indication: CROHN^S DISEASE
     Route: 058
     Dates: start: 20121226, end: 20121226
  2. HUMIRA [Suspect]
     Route: 058
     Dates: start: 20130109, end: 20130109
  3. HUMIRA [Suspect]
     Route: 058
     Dates: start: 20130123
  4. IRON [Suspect]
     Indication: IRON DEFICIENCY ANAEMIA
     Route: 048
     Dates: start: 2012, end: 20130214

REACTIONS (1)
  - Ageusia [Not Recovered/Not Resolved]
